FAERS Safety Report 15457053 (Version 1)
Quarter: 2018Q4

REPORT INFORMATION
  Report Type: Spontaneous
  Country: DE (occurrence: DE)
  Receive Date: 20181002
  Receipt Date: 20181002
  Transmission Date: 20190204
  Serious: Yes (Hospitalization, Other)
  Sender: FDA-Public Use
  Company Number: PHHY2018DE110694

PATIENT
  Age: 69 Year
  Sex: Male
  Weight: 81.4 kg

DRUGS (11)
  1. IRINOTECAN [Suspect]
     Active Substance: IRINOTECAN
     Indication: COLORECTAL CANCER
     Dosage: 345.6 MG, Q2W
     Route: 042
     Dates: start: 20150916
  2. IRINOTECAN [Suspect]
     Active Substance: IRINOTECAN
     Dosage: 173.7 MG, Q2W
     Route: 042
     Dates: start: 20151019
  3. 5-FLUOROURACIL [Suspect]
     Active Substance: FLUOROURACIL
     Dosage: 768 MG, Q2W
     Route: 040
     Dates: start: 20150916
  4. 5-FLUOROURACIL [Suspect]
     Active Substance: FLUOROURACIL
     Dosage: 4632 MG, Q2W
     Route: 041
     Dates: start: 20151021
  5. BISOPROLOL [Concomitant]
     Active Substance: BISOPROLOL
     Indication: HYPERTENSION
     Dosage: 2.5 MG, QD
     Route: 048
     Dates: start: 201508
  6. OXALIPLATIN. [Suspect]
     Active Substance: OXALIPLATIN
     Indication: COLORECTAL CANCER
     Dosage: 163.2 MG, Q2W
     Route: 042
     Dates: start: 20150916, end: 20150916
  7. OXALIPLATIN. [Suspect]
     Active Substance: OXALIPLATIN
     Dosage: 164.05 MG, Q2W
     Route: 042
     Dates: start: 20151006
  8. OXALIPLATIN. [Suspect]
     Active Substance: OXALIPLATIN
     Dosage: 164.05 MG, Q2W
     Route: 042
     Dates: start: 20151019
  9. 5-FLUOROURACIL [Suspect]
     Active Substance: FLUOROURACIL
     Indication: PRODUCT USED FOR UNKNOWN INDICATION
     Dosage: 4608 MG, Q2W
     Route: 041
     Dates: start: 20150916, end: 20150918
  10. 5-FLUOROURACIL [Suspect]
     Active Substance: FLUOROURACIL
     Dosage: 4632 MG, Q2W
     Route: 041
     Dates: start: 20151006
  11. BEVACIZUMAB. [Suspect]
     Active Substance: BEVACIZUMAB
     Indication: COLORECTAL CANCER
     Dosage: 407 MG, Q2W
     Route: 042
     Dates: start: 20150916

REACTIONS (3)
  - Neutropenia [Recovered/Resolved]
  - Enteritis [Recovered/Resolved]
  - Leukopenia [Recovered/Resolved]

NARRATIVE: CASE EVENT DATE: 20150923
